FAERS Safety Report 15430569 (Version 4)
Quarter: 2022Q1

REPORT INFORMATION
  Report Type: Spontaneous
  Country: JP (occurrence: JP)
  Receive Date: 20180926
  Receipt Date: 20220302
  Transmission Date: 20220424
  Serious: Yes (Other)
  Sender: FDA-Public Use
  Company Number: JP-JNJFOC-20180927075

PATIENT
  Sex: Female

DRUGS (14)
  1. DARZALEX [Suspect]
     Active Substance: DARATUMUMAB
     Indication: Plasma cell myeloma
     Route: 041
     Dates: start: 201809
  2. DARZALEX [Suspect]
     Active Substance: DARATUMUMAB
     Dosage: DOSE UNKNOWN
     Route: 041
     Dates: start: 2018
  3. DARZALEX [Suspect]
     Active Substance: DARATUMUMAB
     Dosage: DOSE UNKNOWN
     Route: 041
  4. REVLIMID [Concomitant]
     Active Substance: LENALIDOMIDE
     Indication: Plasma cell myeloma
     Dosage: DOSE UNKNOWN
     Route: 048
     Dates: start: 201809, end: 2018
  5. DEXAMETHASONE [Concomitant]
     Active Substance: DEXAMETHASONE
     Indication: Plasma cell myeloma
     Dosage: DOSE UNKNOWN
     Route: 065
     Dates: start: 201809
  6. DENOSUMAB [Concomitant]
     Active Substance: DENOSUMAB
     Dosage: DOSE UNKNOWN
     Route: 065
     Dates: end: 201809
  7. SOLU-CORTEF [Concomitant]
     Active Substance: HYDROCORTISONE SODIUM SUCCINATE
     Dosage: DOSE UNKNOWN
     Route: 065
  8. FILGRASTIM [Concomitant]
     Active Substance: FILGRASTIM
     Dosage: DOSE UNKNOWN
     Route: 065
  9. FLOMOX [Concomitant]
     Indication: Prophylaxis
     Dosage: DOSE UNKNOWN
     Route: 048
  10. KYPROLIS [Concomitant]
     Active Substance: CARFILZOMIB
     Indication: Plasma cell myeloma
     Dosage: DOSE UNKNOWN
     Route: 065
  11. KYPROLIS [Concomitant]
     Active Substance: CARFILZOMIB
     Indication: Plasma cell myeloma
     Dosage: DOSE UNKNOWN
     Route: 065
  12. SARCLISA [Concomitant]
     Active Substance: ISATUXIMAB-IRFC
     Indication: Plasma cell myeloma
     Dosage: DOSE UNKNOWN
     Route: 065
  13. MONTELUKAST SODIUM [Concomitant]
     Active Substance: MONTELUKAST SODIUM
     Dosage: DOSE UNKNOWN
     Route: 048
  14. DIPHENHYDRAMINE [Concomitant]
     Active Substance: DIPHENHYDRAMINE
     Dosage: DOSE UNKNOWN
     Route: 048

REACTIONS (9)
  - Tumour lysis syndrome [Unknown]
  - Drug ineffective [Unknown]
  - Infusion related reaction [Unknown]
  - Pyrexia [Unknown]
  - Cough [Unknown]
  - Malaise [Unknown]
  - Headache [Unknown]
  - White blood cell count decreased [Unknown]
  - Fracture [Unknown]

NARRATIVE: CASE EVENT DATE: 20180101
